FAERS Safety Report 6924174-3 (Version None)
Quarter: 2010Q3

REPORT INFORMATION
  Report Type: 
  Country: None (occurrence: None)
  Receive Date: 20100812
  Receipt Date: 20100812
  Transmission Date: 20110219
  Serious: Yes (Hospitalization, Disabling)
  Sender: FDA-Public Use
  Company Number: None

PATIENT
  Age: 27 Year
  Sex: Female
  Weight: 66.8 kg

DRUGS (2)
  1. TOBRAMYCIN [Suspect]
     Indication: PSEUDOMONAS INFECTION
     Dosage: 300MG Q12H INHAL
     Route: 055
     Dates: start: 20100511, end: 20100518
  2. TOBRAMYCIN [Suspect]
     Indication: PSEUDOMONAS INFECTION
     Dosage: 300MG Q12H INHAL
     Route: 055
     Dates: start: 20100623, end: 20100624

REACTIONS (2)
  - DEAFNESS TRANSITORY [None]
  - DRUG LEVEL INCREASED [None]
